FAERS Safety Report 12597446 (Version 2)
Quarter: 2016Q4

REPORT INFORMATION
  Report Type: Report from Study
  Country: JP (occurrence: JP)
  Receive Date: 20160726
  Receipt Date: 20161025
  Transmission Date: 20170207
  Serious: Yes (Death, Other)
  Sender: FDA-Public Use
  Company Number: PHJP2016JP020859

PATIENT
  Age: 60 Year
  Sex: Male

DRUGS (11)
  1. PREDNISOLONE. [Concomitant]
     Active Substance: PREDNISOLONE
     Dosage: 100 MG, QD
     Route: 065
     Dates: start: 20040710, end: 20040710
  2. BRUFEN ^ABBOTT^ [Concomitant]
     Active Substance: IBUPROFEN
     Dosage: 200 MG, QD
     Route: 065
     Dates: start: 20140710, end: 20140710
  3. PREDONINE [Concomitant]
     Active Substance: PREDNISOLONE\PREDNISOLONE ACETATE\PREDNISOLONE SODIUM SUCCINATE
     Indication: CHRONIC LYMPHOCYTIC LEUKAEMIA
     Dosage: 25 MG, QD
     Route: 065
  4. OFATUMUMAB [Suspect]
     Active Substance: OFATUMUMAB
     Indication: CHRONIC LYMPHOCYTIC LEUKAEMIA
     Dosage: 300 MG, QD
     Route: 041
     Dates: start: 20140702, end: 20140702
  5. NEOMALLERMIN [Concomitant]
     Active Substance: DEXCHLORPHENIRAMINE MALEATE
     Indication: PRODUCT USED FOR UNKNOWN INDICATION
     Dosage: 6 MG, QD
     Route: 065
     Dates: start: 20140702, end: 20140702
  6. ITRIZOLE [Concomitant]
     Active Substance: ITRACONAZOLE
     Indication: PRODUCT USED FOR UNKNOWN INDICATION
     Dosage: 20 ML, QD
     Route: 065
  7. PREDNISOLONE. [Concomitant]
     Active Substance: PREDNISOLONE
     Indication: PRODUCT USED FOR UNKNOWN INDICATION
     Dosage: 100 MG, QD
     Route: 065
     Dates: start: 20140702, end: 20140702
  8. NEOMALLERMIN [Concomitant]
     Active Substance: DEXCHLORPHENIRAMINE MALEATE
     Dosage: 6 MG, QD
     Route: 065
     Dates: start: 20140710, end: 20140710
  9. OFATUMUMAB [Suspect]
     Active Substance: OFATUMUMAB
     Dosage: 2000 MG, QD
     Route: 041
     Dates: start: 20140710, end: 20140710
  10. BRUFEN ^ABBOTT^ [Concomitant]
     Active Substance: IBUPROFEN
     Indication: PRODUCT USED FOR UNKNOWN INDICATION
     Dosage: 200 MG, QD
     Route: 065
     Dates: start: 20140702, end: 20140702
  11. BAKTAR [Concomitant]
     Active Substance: SULFAMETHOXAZOLE\TRIMETHOPRIM
     Indication: PRODUCT USED FOR UNKNOWN INDICATION
     Dosage: 1 DF, QD
     Route: 048

REACTIONS (6)
  - Chronic lymphocytic leukaemia [Fatal]
  - Infection [Not Recovered/Not Resolved]
  - Hyperhidrosis [Recovered/Resolved]
  - Malignant neoplasm progression [Fatal]
  - Malaise [Recovered/Resolved]
  - Pyrexia [Unknown]

NARRATIVE: CASE EVENT DATE: 20140702
